FAERS Safety Report 5496574-2 (Version None)
Quarter: 2007Q4

REPORT INFORMATION
  Report Type: 
  Country: None (occurrence: None)
  Receive Date: 20071025
  Receipt Date: 20070619
  Transmission Date: 20080405
  Serious: No
  Sender: FDA-Public Use
  Company Number: A0658262A

PATIENT
  Age: 80 Year
  Sex: Female

DRUGS (5)
  1. ADVAIR DISKUS 100/50 [Suspect]
     Indication: ASTHMA
     Route: 055
     Dates: start: 20070430
  2. COMBIVENT [Concomitant]
  3. LOPRESSOR [Concomitant]
  4. ISOSORBIDE DINITRATE [Concomitant]
  5. VITAMINS [Concomitant]

REACTIONS (1)
  - MOUTH ULCERATION [None]
